FAERS Safety Report 9397600 (Version 2)
Quarter: 2013Q3

REPORT INFORMATION
  Report Type: Spontaneous
  Country: BE (occurrence: BE)
  Receive Date: 20130712
  Receipt Date: 20130729
  Transmission Date: 20140515
  Serious: Yes (Death)
  Sender: FDA-Public Use
  Company Number: BE-B.I. PHARMACEUTICALS,INC./RIDGEFIELD-2013-BL-00337BL

PATIENT
  Age: 82 Year
  Sex: Female
  Weight: 50 kg

DRUGS (5)
  1. PRADAXA [Suspect]
     Indication: ATRIAL FIBRILLATION
     Dosage: 220 MG
     Route: 048
     Dates: start: 20130118, end: 20130623
  2. PRADAXA [Suspect]
     Indication: CEREBROVASCULAR ACCIDENT
  3. COVERSYL [Concomitant]
     Dosage: 5 MG
     Route: 048
     Dates: start: 20130118, end: 20130623
  4. EMCONCOR [Concomitant]
     Dosage: 5 MG
     Route: 048
     Dates: start: 20130118, end: 20130623
  5. D-CURE [Concomitant]

REACTIONS (3)
  - Cerebral haemorrhage [Fatal]
  - Fall [Fatal]
  - Coma [Fatal]
